FAERS Safety Report 8508894-5 (Version None)
Quarter: 2012Q3

REPORT INFORMATION
  Report Type: 
  Country: None (occurrence: None)
  Receive Date: 20120713
  Receipt Date: 20120706
  Transmission Date: 20120928
  Serious: No
  Sender: FDA-Public Use
  Company Number: US-US-EMD SERONO, INC.-7039773

PATIENT
  Sex: Female
  Weight: 116 kg

DRUGS (6)
  1. CYMBALTA [Concomitant]
     Indication: DEPRESSION
  2. GABAPENTIN [Concomitant]
     Indication: NEUROPATHY PERIPHERAL
  3. METHADONE HCL [Concomitant]
     Indication: PAIN
  4. CYMBALTA [Concomitant]
     Indication: NEUROPATHY PERIPHERAL
  5. BUSPAR [Concomitant]
     Indication: ANXIETY
     Route: 048
  6. REBIF [Suspect]
     Indication: MULTIPLE SCLEROSIS
     Route: 058
     Dates: start: 20100310

REACTIONS (4)
  - NECK MASS [None]
  - HEADACHE [None]
  - INJECTION SITE ERYTHEMA [None]
  - NASOPHARYNGITIS [None]
